FAERS Safety Report 7792993-X (Version None)
Quarter: 2011Q3

REPORT INFORMATION
  Report Type: 
  Country: None (occurrence: None)
  Receive Date: 20110929
  Receipt Date: 20110915
  Transmission Date: 20111222
  Serious: Yes (Hospitalization)
  Sender: FDA-Public Use
  Company Number: TIF2011A00129

PATIENT
  Age: 67 Year
  Sex: Male

DRUGS (3)
  1. METFORMIN HCL [Concomitant]
  2. ACTOS [Suspect]
     Dates: start: 20090201
  3. GLIMEPIRIDE [Concomitant]

REACTIONS (1)
  - BLADDER CANCER [None]
